FAERS Safety Report 14341860 (Version 2)
Quarter: 2018Q1

REPORT INFORMATION
  Report Type: Spontaneous
  Country: FR (occurrence: FR)
  Receive Date: 20180102
  Receipt Date: 20180201
  Transmission Date: 20180509
  Serious: Yes (Other)
  Sender: FDA-Public Use
  Company Number: FR-BAYER-2017-248038

PATIENT
  Age: 30 Year
  Sex: Male

DRUGS (3)
  1. CORTANCYL [Concomitant]
     Active Substance: PREDNISONE
  2. KEPPRA [Concomitant]
     Active Substance: LEVETIRACETAM
  3. NEXAVAR [Suspect]
     Active Substance: SORAFENIB
     Dosage: 800 MG, QD
     Dates: start: 20171019, end: 20180116

REACTIONS (2)
  - Reactive perforating collagenosis [Recovering/Resolving]
  - Reactive perforating collagenosis [None]
